FAERS Safety Report 24028215 (Version 1)
Quarter: 2024Q2

REPORT INFORMATION
  Report Type: Spontaneous
  Country: PT (occurrence: PT)
  Receive Date: 20240628
  Receipt Date: 20240628
  Transmission Date: 20240715
  Serious: Yes (Hospitalization)
  Sender: FDA-Public Use
  Company Number: PT-STRIDES ARCOLAB LIMITED-2024SP007393

PATIENT
  Age: 23 Year
  Sex: Male

DRUGS (7)
  1. PREDNISOLONE [Suspect]
     Active Substance: PREDNISOLONE
     Indication: Pityriasis lichenoides et varioliformis acuta
     Dosage: 1 MILLIGRAM/KILOGRAM, QD
     Route: 048
  2. PREDNISOLONE [Suspect]
     Active Substance: PREDNISOLONE
     Dosage: UNK (REDUCED DOSE)
     Route: 065
  3. PREDNISOLONE [Suspect]
     Active Substance: PREDNISOLONE
     Dosage: UNK (REDUCED DOSE)
     Route: 065
  4. DOXYCYCLINE [Suspect]
     Active Substance: DOXYCYCLINE\DOXYCYCLINE HYCLATE
     Indication: Pityriasis lichenoides et varioliformis acuta
     Dosage: 100 MILLIGRAM, OD
     Route: 065
  5. METHOTREXATE [Suspect]
     Active Substance: METHOTREXATE
     Indication: Pityriasis lichenoides et varioliformis acuta
     Dosage: 20 MILLIGRAM, ONCE A WEEK
     Route: 051
  6. METHOTREXATE [Suspect]
     Active Substance: METHOTREXATE
     Dosage: UNK (RESTARTED)
     Route: 065
  7. METHOTREXATE [Suspect]
     Active Substance: METHOTREXATE
     Dosage: 10 MILLIGRAM, ONCE A WEEK (LOW DOSE)
     Route: 051

REACTIONS (5)
  - Drug ineffective [Unknown]
  - Condition aggravated [Unknown]
  - Enterobacter infection [Unknown]
  - Pseudomonas infection [Unknown]
  - Off label use [Unknown]
